FAERS Safety Report 21190300 (Version 3)
Quarter: 2022Q4

REPORT INFORMATION
  Report Type: Spontaneous
  Country: US (occurrence: US)
  Receive Date: 20220809
  Receipt Date: 20221028
  Transmission Date: 20230112
  Serious: No
  Sender: FDA-Public Use
  Company Number: US-BIOVITRUM-2022US09448

PATIENT
  Age: 45 Year
  Sex: Female
  Weight: 18 kg

DRUGS (3)
  1. KINERET [Suspect]
     Active Substance: ANAKINRA
     Indication: Pericarditis constrictive
     Dates: start: 201905
  2. KINERET [Suspect]
     Active Substance: ANAKINRA
     Indication: Pericarditis
     Dates: start: 20191013
  3. KINERET [Suspect]
     Active Substance: ANAKINRA
     Dates: start: 202002

REACTIONS (4)
  - Weight increased [Unknown]
  - Fluid retention [Unknown]
  - Off label use [Not Recovered/Not Resolved]
  - Product dose omission issue [Unknown]

NARRATIVE: CASE EVENT DATE: 20190301
